FAERS Safety Report 9836759 (Version 1)
Quarter: 2014Q1

REPORT INFORMATION
  Report Type: Spontaneous
  Country: US (occurrence: US)
  Receive Date: 20140123
  Receipt Date: 20140123
  Transmission Date: 20141002
  Serious: No
  Sender: FDA-Public Use
  Company Number: US-PFIZER INC-2014014106

PATIENT
  Age: 48 Year
  Sex: Female
  Weight: 102 kg

DRUGS (5)
  1. LYRICA [Suspect]
     Indication: NEURALGIA
     Dosage: 150 MG, 3X/DAY
  2. LORTAB [Interacting]
     Indication: NEURALGIA
     Dosage: UNK MG, 2X/DAY
     Dates: start: 2013, end: 2013
  3. LORTAB [Interacting]
     Indication: NECK PAIN
  4. REMERON [Concomitant]
     Indication: BIPOLAR DISORDER
     Dosage: UNK
  5. REMERON [Concomitant]
     Indication: SLEEP DISORDER

REACTIONS (4)
  - Pre-existing condition improved [Unknown]
  - Therapeutic response unexpected [Unknown]
  - Drug interaction [Unknown]
  - Drug effect prolonged [Unknown]
